FAERS Safety Report 21922590 (Version 3)
Quarter: 2023Q1

REPORT INFORMATION
  Report Type: Spontaneous
  Country: TW (occurrence: TW)
  Receive Date: 20230128
  Receipt Date: 20230217
  Transmission Date: 20230417
  Serious: Yes (Other)
  Sender: FDA-Public Use
  Company Number: TW-CELLTRION INC.-2023TW002055

PATIENT

DRUGS (7)
  1. INFLIXIMAB [Suspect]
     Active Substance: INFLIXIMAB
     Indication: Ankylosing spondylitis
     Dosage: 2 VIALS, ON 06 DEC 2022 (WEEK 0), THE PATIENT RECEIVED REMSIMA (INFLIXIMAB) 2 VIALS WITH PREMIDICATI
     Route: 041
     Dates: start: 20221206
  2. INFLIXIMAB [Suspect]
     Active Substance: INFLIXIMAB
     Dosage: 2 VIALS, ON 20 DEC 2022 (WEEK 2), THE PATIENT RECEIVED REMSIMA (INFLIXIMAB) 2 VIALS WITHOUT PRE-ADMI
     Route: 041
     Dates: start: 20221220
  3. INFLIXIMAB [Suspect]
     Active Substance: INFLIXIMAB
     Dosage: 2 VIALS, ON 17 JAN 2023 (WEEK 6), THE PATIENT RECEIVED REMSIMA (INFLIXIMAB) 2 VIALS VIA INTRAVENOUS
     Route: 041
     Dates: start: 20230117
  4. CELECOXIB [Concomitant]
     Active Substance: CELECOXIB
     Indication: Premedication
     Dosage: 1# BID
  5. FOLIC ACID [Concomitant]
     Active Substance: FOLIC ACID
     Indication: Premedication
     Dosage: 1#QW
  6. METHOTREXATE [Concomitant]
     Active Substance: METHOTREXATE
     Indication: Premedication
     Dosage: 3#QW
  7. SULFASALAZINE [Concomitant]
     Active Substance: SULFASALAZINE
     Indication: Premedication
     Dosage: 1# TID

REACTIONS (4)
  - Palpitations [Unknown]
  - Dyspnoea [Unknown]
  - Gastroenteritis viral [Unknown]
  - Pyrexia [Unknown]

NARRATIVE: CASE EVENT DATE: 20221220
